FAERS Safety Report 25122372 (Version 1)
Quarter: 2025Q1

REPORT INFORMATION
  Report Type: Report from Study
  Country: CA (occurrence: CA)
  Receive Date: 20250326
  Receipt Date: 20250326
  Transmission Date: 20250408
  Serious: Yes (Other)
  Sender: ROCHE
  Company Number: CA-ROCHE-10000235148

PATIENT
  Age: 51 Year
  Sex: Female

DRUGS (1)
  1. VABYSMO [Suspect]
     Active Substance: FARICIMAB-SVOA
     Indication: Neovascular age-related macular degeneration
     Dosage: 1 VIAL IN OU MONTHLY FOR WAMD
     Route: 050
     Dates: start: 20240903

REACTIONS (1)
  - Bone cancer [Not Recovered/Not Resolved]
